FAERS Safety Report 4471426-5 (Version None)
Quarter: 2004Q4

REPORT INFORMATION
  Report Type: 
  Country: None (occurrence: None)
  Receive Date: 20041007
  Receipt Date: 20041007
  Transmission Date: 20050328
  Serious: Yes (Other)
  Sender: FDA-Public Use
  Company Number: None

PATIENT
  Age: 11 Year
  Sex: Male
  Weight: 37 kg

DRUGS (6)
  1. INFLIXIMAB [Suspect]
     Indication: COLITIS
     Dosage: 175 MG   ONCE   INTRAVENOUS
     Route: 042
     Dates: start: 20040822, end: 20040822
  2. METHYLPREDNISOLONE [Concomitant]
  3. RANITIDINE [Concomitant]
  4. BUPIVACAINE [Concomitant]
  5. TPN [Concomitant]
  6. MORPHINE [Concomitant]

REACTIONS (9)
  - ABDOMINAL PAIN [None]
  - COLITIS [None]
  - CONDITION AGGRAVATED [None]
  - DIARRHOEA HAEMORRHAGIC [None]
  - ELECTROENCEPHALOGRAM ABNORMAL [None]
  - LEUKOENCEPHALOPATHY [None]
  - NUCLEAR MAGNETIC RESONANCE IMAGING BRAIN ABNORMAL [None]
  - PARTIAL SEIZURES [None]
  - VASCULITIS [None]
